FAERS Safety Report 8382568-6 (Version None)
Quarter: 2012Q2

REPORT INFORMATION
  Report Type: 
  Country: None (occurrence: None)
  Receive Date: 20120524
  Receipt Date: 20120518
  Transmission Date: 20120825
  Serious: Yes (Other)
  Sender: FDA-Public Use
  Company Number: FR-AMGEN-FRACT2012029357

PATIENT
  Age: 79 Year
  Sex: Female

DRUGS (2)
  1. PREDNISONE TAB [Concomitant]
     Dosage: 20 MG, QD
     Dates: start: 20110603
  2. ROMIPLOSTIM [Suspect]
     Indication: THROMBOCYTOPENIA
     Dosage: 10 MUG/KG, QWK
     Route: 058
     Dates: start: 20110818

REACTIONS (1)
  - NECK PAIN [None]
